FAERS Safety Report 17747257 (Version 1)
Quarter: 2020Q2

REPORT INFORMATION
  Report Type: Spontaneous
  Country: CN (occurrence: CN)
  Receive Date: 20200505
  Receipt Date: 20200505
  Transmission Date: 20200714
  Serious: Yes (Hospitalization)
  Sender: FDA-Public Use
  Company Number: CN-BAXTER-2020BAX009352

PATIENT
  Age: 7 Year
  Sex: Female
  Weight: 20.4 kg

DRUGS (9)
  1. 0.9% SODIUM CHLORIDE INJECTION [Suspect]
     Active Substance: SODIUM CHLORIDE
     Dosage: 0.9% NS + ONDANSETRON HYDROCHLORIDE 4.1 MG
     Route: 041
     Dates: start: 20200416, end: 20200417
  2. VINCRISTINE SULFATE. [Suspect]
     Active Substance: VINCRISTINE SULFATE
     Indication: MEDULLOBLASTOMA
     Dosage: DAY1, VINCRISTINE SULFATE + 0.9% NS (20 ML)
     Route: 042
     Dates: start: 20200416, end: 20200416
  3. NUOXIN [Suspect]
     Active Substance: CISPLATIN
     Indication: MEDULLOBLASTOMA
     Dosage: DAY 1, NUOXIN + 0.9 %NS (162 ML)
     Route: 041
     Dates: start: 20200416, end: 20200416
  4. MESNA. [Suspect]
     Active Substance: MESNA
     Indication: PROPHYLAXIS
     Route: 041
     Dates: start: 20200416, end: 20200417
  5. ENDOXAN [Suspect]
     Active Substance: CYCLOPHOSPHAMIDE
     Indication: MEDULLOBLASTOMA
     Dosage: ENDOXAN + 0.9 NS (69 ML)
     Route: 041
     Dates: start: 20200416, end: 20200417
  6. 0.9% SODIUM CHLORIDE INJECTION [Suspect]
     Active Substance: SODIUM CHLORIDE
     Indication: MEDICATION DILUTION
     Dosage: 0.9% NS + ENDOXAN 810 MG
     Route: 041
     Dates: start: 20200416, end: 20200417
  7. 0.9% SODIUM CHLORIDE INJECTION [Suspect]
     Active Substance: SODIUM CHLORIDE
     Dosage: DAY1, 0.9% NS+ VINCRISTINE SULFATE 1.2 MG
     Route: 042
     Dates: start: 20200416, end: 20200416
  8. ONDANSETRON HYDROCHLORIDE. [Suspect]
     Active Substance: ONDANSETRON HYDROCHLORIDE
     Indication: ANTIEMETIC SUPPORTIVE CARE
     Dosage: ONDANSETRONE HYDROCHLORIDE 4.1 MG+ 0.9% NS (25 ML)
     Route: 041
     Dates: start: 20200416, end: 20200417
  9. 0.9% SODIUM CHLORIDE INJECTION [Suspect]
     Active Substance: SODIUM CHLORIDE
     Dosage: DAY 1, 0.9% NS+ CISPLATIN 61 MG
     Route: 041
     Dates: start: 20200416, end: 20200416

REACTIONS (4)
  - Vomiting [Recovering/Resolving]
  - Neutropenia [Recovering/Resolving]
  - Pyrexia [Recovered/Resolved]
  - White blood cell count decreased [Recovering/Resolving]

NARRATIVE: CASE EVENT DATE: 20200418
